FAERS Safety Report 7646436-7 (Version None)
Quarter: 2011Q3

REPORT INFORMATION
  Report Type: 
  Country: None (occurrence: None)
  Receive Date: 20110801
  Receipt Date: 20110721
  Transmission Date: 20111222
  Serious: Yes (Hospitalization)
  Sender: FDA-Public Use
  Company Number: US-JNJFOC-20101201372

PATIENT
  Age: 30 Year
  Sex: Female

DRUGS (1)
  1. NUCYNTA [Suspect]
     Indication: PRODUCT USED FOR UNKNOWN INDICATION
     Dosage: ONCE EVERY 4-6 HOURS
     Route: 048
     Dates: start: 20101101, end: 20101101

REACTIONS (1)
  - PSYCHOTIC DISORDER [None]
